FAERS Safety Report 19475061 (Version 1)
Quarter: 2021Q2

REPORT INFORMATION
  Report Type: Spontaneous
  Country: US (occurrence: US)
  Receive Date: 20210629
  Receipt Date: 20210629
  Transmission Date: 20210717
  Serious: No
  Sender: FDA-Public Use
  Company Number: US-SA-2021SA211079

PATIENT
  Sex: Female

DRUGS (1)
  1. DUPIXENT [Suspect]
     Active Substance: DUPILUMAB
     Dosage: UNKNOWN
     Dates: start: 202104

REACTIONS (3)
  - Pruritus [Unknown]
  - Eczema [Unknown]
  - Dry skin [Unknown]

NARRATIVE: CASE EVENT DATE: 202106
